FAERS Safety Report 7742599-3 (Version None)
Quarter: 2011Q3

REPORT INFORMATION
  Report Type: 
  Country: None (occurrence: None)
  Receive Date: 20110912
  Receipt Date: 20110905
  Transmission Date: 20111222
  Serious: Yes (Hospitalization, Other)
  Sender: FDA-Public Use
  Company Number: PHHY2009BR12622

PATIENT
  Sex: Female
  Weight: 92.6 kg

DRUGS (10)
  1. TOPIRAMATE [Concomitant]
     Indication: EPILEPSY
     Dosage: 1 DF, BID
     Route: 048
     Dates: start: 20090101
  2. PONDERAL [Concomitant]
     Indication: EPILEPSY
     Dosage: 50 MG, QD
     Route: 048
     Dates: start: 20090101
  3. OMEPRAZOLE [Concomitant]
     Indication: ABDOMINAL PAIN UPPER
     Dosage: 20 MG, BID, IN THE MORNING AND AT NIGHT
     Route: 048
     Dates: start: 19990101
  4. TRILEPTAL [Suspect]
     Indication: EPILEPSY
     Dosage: 300 MG, BID OF 1 TABLET IN THE MORNING AND 1 TABLET AT NIGHT
     Route: 048
     Dates: start: 20030101
  5. PANTOPRAZOLE [Concomitant]
     Indication: PROPHYLAXIS
  6. FRISIUM [Concomitant]
     Indication: DEPRESSION
     Dosage: 10 MG, QD
     Route: 048
  7. TEGRETOL [Concomitant]
     Dosage: UNK UKN, UNK
  8. TRILEPTAL [Suspect]
     Dosage: 600 MG, BID OF 1 TABLET IN THE MORNING AND 1 TABLET AT NIGHT
  9. PHENOBARBITAL TAB [Concomitant]
     Dosage: UNK UKN, UNK
  10. FRISIUM [Concomitant]
     Dosage: 20 MG, TID

REACTIONS (9)
  - WEIGHT DECREASED [None]
  - PALLOR [None]
  - MEMORY IMPAIRMENT [None]
  - DECREASED APPETITE [None]
  - NERVOUSNESS [None]
  - DEPRESSION [None]
  - CONVULSION [None]
  - PETIT MAL EPILEPSY [None]
  - INCREASED APPETITE [None]
